FAERS Safety Report 6413064-0 (Version None)
Quarter: 2009Q4

REPORT INFORMATION
  Report Type: 
  Country: None (occurrence: None)
  Receive Date: 20091023
  Receipt Date: 20091023
  Transmission Date: 20100525
  Serious: No
  Sender: FDA-Public Use
  Company Number: None

PATIENT
  Age: 47 Year
  Sex: Female
  Weight: 67.1324 kg

DRUGS (3)
  1. NUVARING [Suspect]
     Indication: MENOPAUSAL SYMPTOMS
     Dosage: ONCE PER MONTH ONCE PER MONTH VAG
     Route: 067
     Dates: start: 20081201, end: 20090130
  2. NUVARING [Suspect]
     Indication: MENSTRUATION IRREGULAR
     Dosage: ONCE PER MONTH ONCE PER MONTH VAG
     Route: 067
     Dates: start: 20081201, end: 20090130
  3. NUVARING [Suspect]
     Indication: POLYMENORRHOEA
     Dosage: ONCE PER MONTH ONCE PER MONTH VAG
     Route: 067
     Dates: start: 20081201, end: 20090130

REACTIONS (5)
  - CHILLS [None]
  - DISCOMFORT [None]
  - MEDICAL DEVICE COMPLICATION [None]
  - METRORRHAGIA [None]
  - PRODUCT SIZE ISSUE [None]
